FAERS Safety Report 14514883 (Version 3)
Quarter: 2018Q2

REPORT INFORMATION
  Report Type: Report from Study
  Country: US (occurrence: US)
  Receive Date: 20180209
  Receipt Date: 20180418
  Transmission Date: 20180711
  Serious: No
  Sender: FDA-Public Use
  Company Number: PHEH2018US004322

PATIENT
  Sex: Female

DRUGS (3)
  1. COSENTYX [Suspect]
     Active Substance: SECUKINUMAB
     Indication: PSORIASIS
     Dosage: 300 MG, UNK
     Route: 058
  2. COSENTYX [Suspect]
     Active Substance: SECUKINUMAB
     Dosage: 150 MG, QMO
     Route: 058
  3. COSENTYX [Suspect]
     Active Substance: SECUKINUMAB
     Dosage: 150 MG, Q2W
     Route: 058
     Dates: start: 20171201

REACTIONS (10)
  - Injection site rash [Unknown]
  - Injection site pruritus [Unknown]
  - Cough [Not Recovered/Not Resolved]
  - Malaise [Unknown]
  - Upper respiratory tract infection [Unknown]
  - Ear infection [Unknown]
  - Nervous system disorder [Unknown]
  - Sinusitis [Unknown]
  - Inappropriate schedule of drug administration [Unknown]
  - Cystitis [Unknown]
